FAERS Safety Report 10313627 (Version 1)
Quarter: 2014Q3

REPORT INFORMATION
  Report Type: Spontaneous
  Country: US (occurrence: None)
  Receive Date: 20140716
  Receipt Date: 20140716
  Transmission Date: 20150326
  Serious: Yes (Hospitalization)
  Sender: FDA-Public Use
  Company Number: UNT-2014-003712

PATIENT
  Age: 75 Year
  Sex: Male
  Weight: 85.3 kg

DRUGS (3)
  1. REMODULIN [Suspect]
     Active Substance: TREPROSTINIL
     Indication: PULMONARY ARTERIAL HYPERTENSION
     Dosage: 0.022 UG/KG, CONTINUING, IV DRIP
     Route: 041
     Dates: start: 20140513
  2. COUMADIN [Concomitant]
     Active Substance: WARFARIN SODIUM
  3. MACOTENTAN (MACOTENTAN) [Concomitant]

REACTIONS (1)
  - Dyspnoea [None]

NARRATIVE: CASE EVENT DATE: 20140702
